FAERS Safety Report 12364603 (Version 2)
Quarter: 2016Q2

REPORT INFORMATION
  Report Type: Report from Study
  Country: US (occurrence: US)
  Receive Date: 20160512
  Receipt Date: 20160523
  Transmission Date: 20160815
  Serious: Yes (Death)
  Sender: FDA-Public Use
  Company Number: US-B.I. PHARMACEUTICALS,INC./RIDGEFIELD-2015-BI-55423BP

PATIENT
  Age: 56 Year
  Sex: Female

DRUGS (2)
  1. OFEV [Suspect]
     Active Substance: NINTEDANIB
     Dosage: 200 MG
     Route: 048
  2. OFEV [Suspect]
     Active Substance: NINTEDANIB
     Indication: IDIOPATHIC PULMONARY FIBROSIS
     Dosage: 300 MG
     Route: 048
     Dates: start: 20150917

REACTIONS (14)
  - Diarrhoea [Unknown]
  - Abdominal pain [Unknown]
  - Dyspnoea [Unknown]
  - Death [Fatal]
  - Nausea [Unknown]
  - Depression [Unknown]
  - Abdominal distension [Unknown]
  - Secretion discharge [Unknown]
  - Pyrexia [Unknown]
  - Headache [Unknown]
  - Cough [Unknown]
  - Vomiting [Unknown]
  - Swelling [Unknown]
  - Diverticulitis [Unknown]

NARRATIVE: CASE EVENT DATE: 20150917
